FAERS Safety Report 25732572 (Version 2)
Quarter: 2025Q3

REPORT INFORMATION
  Report Type: Report from Study
  Country: JP (occurrence: JP)
  Receive Date: 20250827
  Receipt Date: 20250905
  Transmission Date: 20251020
  Serious: Yes (Hospitalization)
  Sender: BIOMARIN
  Company Number: JP-BIOMARINAP-JP-2025-168303

PATIENT
  Age: 2 Year
  Sex: Female
  Weight: 11.5 kg

DRUGS (1)
  1. VOXZOGO [Suspect]
     Active Substance: VOSORITIDE
     Indication: Osteochondrodysplasia
     Dosage: 0.20 MILLILITER, QD
     Dates: start: 20230606

REACTIONS (1)
  - Hydrocele female [Recovered/Resolved]

NARRATIVE: CASE EVENT DATE: 20250415
